FAERS Safety Report 6333505-7 (Version None)
Quarter: 2009Q3

REPORT INFORMATION
  Report Type: 
  Country: None (occurrence: None)
  Receive Date: 20090828
  Receipt Date: 20090820
  Transmission Date: 20100115
  Serious: Yes (Hospitalization)
  Sender: FDA-Public Use
  Company Number: US-ABBOTT-09P-163-0592356-00

PATIENT
  Sex: Male
  Weight: 113.5 kg

DRUGS (1)
  1. TRICOR [Suspect]
     Indication: BLOOD TRIGLYCERIDES
     Route: 048
     Dates: start: 20070101

REACTIONS (3)
  - RETINAL DETACHMENT [None]
  - RETINAL SCAR [None]
  - RETINAL TRANSPLANT [None]
